FAERS Safety Report 12771790 (Version 2)
Quarter: 2017Q1

REPORT INFORMATION
  Report Type: Spontaneous
  Country: US (occurrence: US)
  Receive Date: 20160922
  Receipt Date: 20170206
  Transmission Date: 20170428
  Serious: Yes (Other)
  Sender: FDA-Public Use
  Company Number: US-009507513-1609USA008220

PATIENT
  Sex: Male
  Weight: 91.61 kg

DRUGS (11)
  1. TRICOR [Concomitant]
     Active Substance: FENOFIBRATE
     Indication: BLOOD CHOLESTEROL INCREASED
     Dosage: UNK
     Route: 065
     Dates: start: 20040618, end: 20120116
  2. PROPECIA [Suspect]
     Active Substance: FINASTERIDE
     Indication: ANDROGENETIC ALOPECIA
     Dosage: 1 MG, QD
     Route: 065
     Dates: start: 20061110, end: 201010
  3. FINASTERIDE. [Suspect]
     Active Substance: FINASTERIDE
     Dosage: 5MG (1/4 TAB) QD
     Route: 048
     Dates: start: 20100709
  4. LITHIUM CARBONATE. [Concomitant]
     Active Substance: LITHIUM CARBONATE
     Indication: MOOD SWINGS
     Dosage: UNK
     Route: 065
     Dates: start: 20060613, end: 20130220
  5. LIPITOR [Concomitant]
     Active Substance: ATORVASTATIN CALCIUM
     Indication: BLOOD CHOLESTEROL INCREASED
     Dosage: UNK
     Route: 065
     Dates: start: 20031204, end: 20120121
  6. FINASTERIDE. [Suspect]
     Active Substance: FINASTERIDE
     Indication: ANDROGENETIC ALOPECIA
     Dosage: 5MG (1/2 TAB) QD
     Route: 048
     Dates: start: 20081231
  7. DESONIDE. [Concomitant]
     Active Substance: DESONIDE
     Indication: SKIN DISORDER
     Dosage: UNK
     Route: 065
     Dates: start: 20040103, end: 20070712
  8. PROPECIA [Suspect]
     Active Substance: FINASTERIDE
     Dosage: 1/2 TAB QOD
     Route: 048
     Dates: start: 20110309
  9. LUNESTA [Concomitant]
     Active Substance: ESZOPICLONE
     Indication: INSOMNIA
     Dosage: UNK
     Dates: start: 20060324, end: 20090927
  10. FINASTERIDE. [Suspect]
     Active Substance: FINASTERIDE
     Dosage: 5MG (1/4 TAB) QD
     Route: 048
     Dates: start: 20090502
  11. TRIAMCINOLONE [Concomitant]
     Active Substance: TRIAMCINOLONE
     Indication: SKIN DISORDER
     Dosage: UNK
     Route: 065
     Dates: start: 20030713, end: 20070709

REACTIONS (18)
  - Erectile dysfunction [Not Recovered/Not Resolved]
  - Depression [Not Recovered/Not Resolved]
  - Anxiety [Not Recovered/Not Resolved]
  - Gynaecomastia [Recovered/Resolved]
  - Muscle spasms [Unknown]
  - Sexual dysfunction [Not Recovered/Not Resolved]
  - Hair transplant [Unknown]
  - Inappropriate schedule of drug administration [Unknown]
  - Skin discolouration [Unknown]
  - Benign prostatic hyperplasia [Unknown]
  - Glucose tolerance impaired [Unknown]
  - Diabetes mellitus [Unknown]
  - Emotional distress [Not Recovered/Not Resolved]
  - Hypertension [Unknown]
  - Libido decreased [Recovered/Resolved]
  - Wrong technique in product usage process [Unknown]
  - Inflammation [Not Recovered/Not Resolved]
  - Pyrexia [Unknown]

NARRATIVE: CASE EVENT DATE: 20070117
